FAERS Safety Report 4461829-7 (Version None)
Quarter: 2004Q3

REPORT INFORMATION
  Report Type: 
  Country: None (occurrence: None)
  Receive Date: 20040929
  Receipt Date: 20031027
  Transmission Date: 20050211
  Serious: No
  Sender: FDA-Public Use
  Company Number: US-GLAXOSMITHKLINE-A0431732A

PATIENT
  Age: 67 Year
  Sex: Female

DRUGS (9)
  1. SEREVENT [Suspect]
     Dosage: 1PUFF TWICE PER DAY
     Route: 065
  2. COMBIVENT [Concomitant]
  3. NORVASK [Concomitant]
  4. TOPROL-XL [Concomitant]
  5. XANAX [Concomitant]
  6. PROZAC [Concomitant]
  7. PROTONIX [Concomitant]
  8. PREDNISONE [Concomitant]
  9. ALBUTEROL/IPRATROPIUM [Concomitant]

REACTIONS (1)
  - DYSPNOEA [None]
